FAERS Safety Report 6988593-1 (Version None)
Quarter: 2010Q3

REPORT INFORMATION
  Report Type: 
  Country: None (occurrence: None)
  Receive Date: 20100827
  Receipt Date: 20100525
  Transmission Date: 20110219
  Serious: Yes (Life-Threatening, Other)
  Sender: FDA-Public Use
  Company Number: 012544

PATIENT
  Sex: Female

DRUGS (1)
  1. LACOSAMIDE [Suspect]
     Indication: EPILEPSY
     Dosage: (ORAL), TITRATED DOSE ORAL
     Route: 048

REACTIONS (1)
  - SELF-INJURIOUS IDEATION [None]
